FAERS Safety Report 4929172-7 (Version None)
Quarter: 2006Q1

REPORT INFORMATION
  Report Type: 
  Country: None (occurrence: None)
  Receive Date: 20060301
  Receipt Date: 20041214
  Transmission Date: 20060701
  Serious: Yes (Hospitalization, Disabling)
  Sender: FDA-Public Use
  Company Number: US-MERCK-0412USA01973

PATIENT
  Age: 55 Year
  Sex: Male
  Weight: 105 kg

DRUGS (6)
  1. VIOXX [Suspect]
     Indication: BACK PAIN
     Route: 048
     Dates: start: 19990601, end: 20040930
  2. VIOXX [Suspect]
     Indication: PAIN IN EXTREMITY
     Route: 048
     Dates: start: 19990601, end: 20040930
  3. TYLENOL (CAPLET) [Concomitant]
     Route: 065
  4. IBUPROFEN [Concomitant]
     Route: 065
  5. ASPIRIN [Concomitant]
     Route: 065
  6. ALEVE [Concomitant]
     Route: 065

REACTIONS (13)
  - ANXIETY [None]
  - AORTIC ANEURYSM [None]
  - ARTERIAL OCCLUSIVE DISEASE [None]
  - CARDIAC DISORDER [None]
  - CARDIOVASCULAR DISORDER [None]
  - CARDIOVASCULAR INSUFFICIENCY [None]
  - CARPAL TUNNEL SYNDROME [None]
  - DEPRESSION [None]
  - EMOTIONAL DISORDER [None]
  - POOR PERIPHERAL CIRCULATION [None]
  - SLEEP DISORDER [None]
  - STRESS [None]
  - THROMBOSIS [None]
